FAERS Safety Report 19265296 (Version 2)
Quarter: 2021Q2

REPORT INFORMATION
  Report Type: Spontaneous
  Country: US (occurrence: US)
  Receive Date: 20210517
  Receipt Date: 20210521
  Transmission Date: 20210717
  Serious: No
  Sender: FDA-Public Use
  Company Number: US-GW PHARMA-202105USGW02288

PATIENT

DRUGS (1)
  1. EPIDIOLEX [Suspect]
     Active Substance: CANNABIDIOL
     Indication: LENNOX-GASTAUT SYNDROME
     Dosage: 4.8 MG/KG/DAY, 240 MILLIGRAM, BID
     Route: 048
     Dates: start: 20200402

REACTIONS (2)
  - Seizure [Unknown]
  - Weight increased [Unknown]
